FAERS Safety Report 7417514-2 (Version None)
Quarter: 2011Q2

REPORT INFORMATION
  Report Type: 
  Country: None (occurrence: None)
  Receive Date: 20110412
  Receipt Date: 20110412
  Transmission Date: 20111010
  Serious: Yes (Hospitalization)
  Sender: FDA-Public Use
  Company Number: None

PATIENT
  Age: 5 Year
  Sex: Male
  Weight: 22.2 kg

DRUGS (2)
  1. PROPOFOL [Suspect]
     Indication: LUMBAR PUNCTURE
     Dosage: 30 MG X6 IV BOLUS
     Route: 040
     Dates: start: 20110407, end: 20110407
  2. PROPOFOL [Suspect]
     Dosage: 40 MG X2 IV BOLUS
     Route: 040
     Dates: start: 20110407, end: 20110407

REACTIONS (2)
  - BLOOD PRESSURE DECREASED [None]
  - DRUG EFFECT DECREASED [None]
